FAERS Safety Report 5965024-1 (Version None)
Quarter: 2008Q4

REPORT INFORMATION
  Report Type: 
  Country: None (occurrence: None)
  Receive Date: 20081124
  Receipt Date: 20081124
  Transmission Date: 20090506
  Serious: Yes (Hospitalization, Disabling, Other)
  Sender: FDA-Public Use
  Company Number: None

PATIENT
  Age: 35 Year
  Sex: Male
  Weight: 83.9154 kg

DRUGS (1)
  1. CIPRO [Suspect]
     Indication: SPERMATOCELE
     Dosage: 500 2X DAY PO
     Route: 048
     Dates: start: 20081022, end: 20081025

REACTIONS (8)
  - BLOOD CORTISOL INCREASED [None]
  - HYPOTHYROIDISM [None]
  - INSOMNIA [None]
  - PANIC ATTACK [None]
  - TEMPOROMANDIBULAR JOINT SYNDROME [None]
  - TENDONITIS [None]
  - TINNITUS [None]
  - VISION BLURRED [None]
